FAERS Safety Report 5217733-X (Version None)
Quarter: 2007Q1

REPORT INFORMATION
  Report Type: 
  Country: None (occurrence: None)
  Receive Date: 20070119
  Receipt Date: 20070105
  Transmission Date: 20070707
  Serious: Yes (Hospitalization, Other)
  Sender: FDA-Public Use
  Company Number: HQWYE620205JAN07

PATIENT
  Age: 70 Year
  Sex: Male

DRUGS (8)
  1. CORDARONE [Suspect]
     Indication: ATRIAL FIBRILLATION
     Dosage: 200 MG 1X PER 1 DAY ORAL; ^ A FEW YEARS ^
     Route: 048
     Dates: end: 20060921
  2. CORDARONE [Suspect]
     Indication: ATRIAL FLUTTER
     Dosage: 200 MG 1X PER 1 DAY ORAL; ^ A FEW YEARS ^
     Route: 048
     Dates: end: 20060921
  3. GLUCOPHAGE [Suspect]
     Indication: DIABETES MELLITUS
     Dosage: 850 MG 1X PER 1 DAY ORAL
     Route: 048
     Dates: end: 20060919
  4. PREVISCAN (FLUINDIONE, ) [Suspect]
     Indication: ATRIAL FIBRILLATION
     Dosage: 20 MG 1X PER 1 DAY ORAL; ^ A FEW YEARS ^
     Route: 048
     Dates: end: 20060921
  5. PREVISCAN (FLUINDIONE, ) [Suspect]
     Indication: ATRIAL FLUTTER
     Dosage: 20 MG 1X PER 1 DAY ORAL; ^ A FEW YEARS ^
     Route: 048
     Dates: end: 20060921
  6. FEXOFENADINE HCL [Suspect]
     Indication: DERMATITIS CONTACT
     Dosage: ORAL
     Route: 048
     Dates: end: 20060911
  7. FEXOFENADINE HCL [Suspect]
     Indication: ECZEMA
     Dosage: ORAL
     Route: 048
     Dates: end: 20060911
  8. FENOFIBRATE [Concomitant]

REACTIONS (5)
  - ANGIOEDEMA [None]
  - EOSINOPHILIA [None]
  - HYPOGAMMAGLOBULINAEMIA [None]
  - PERICARDIAL EFFUSION [None]
  - WEIGHT INCREASED [None]
